FAERS Safety Report 7060856-3 (Version None)
Quarter: 2010Q4

REPORT INFORMATION
  Report Type: 
  Country: None (occurrence: None)
  Receive Date: 20101025
  Receipt Date: 20101022
  Transmission Date: 20110411
  Serious: Yes (Other)
  Sender: FDA-Public Use
  Company Number: US-ABBOTT-10P-163-0680662-00

PATIENT
  Sex: Female

DRUGS (1)
  1. LUPRON [Suspect]
     Indication: PRODUCT USED FOR UNKNOWN INDICATION

REACTIONS (8)
  - CRYING [None]
  - DEPRESSION [None]
  - HOT FLUSH [None]
  - IMPAIRED WORK ABILITY [None]
  - MIGRAINE [None]
  - PAIN [None]
  - SURGERY [None]
  - UNEVALUABLE EVENT [None]
